FAERS Safety Report 17687458 (Version 1)
Quarter: 2020Q2

REPORT INFORMATION
  Report Type: Spontaneous
  Country: FR (occurrence: FR)
  Receive Date: 20200421
  Receipt Date: 20200421
  Transmission Date: 20200714
  Serious: Yes (Hospitalization)
  Sender: FDA-Public Use
  Company Number: FR-TEVA-2020-FR-1225680

PATIENT
  Age: 21 Year
  Sex: Male
  Weight: 84 kg

DRUGS (1)
  1. IBUPROFENE [Suspect]
     Active Substance: IBUPROFEN
     Indication: PAIN
     Dosage: SINGLE PLUG
     Route: 048
     Dates: start: 20170906, end: 20170906

REACTIONS (2)
  - Erysipelas [Unknown]
  - Staphylococcal abscess [Unknown]

NARRATIVE: CASE EVENT DATE: 20170910
